FAERS Safety Report 11152962 (Version 1)
Quarter: 2015Q2

REPORT INFORMATION
  Report Type: Spontaneous
  Country: US (occurrence: None)
  Receive Date: 20150522
  Receipt Date: 20150522
  Transmission Date: 20150821
  Serious: Yes (Disabling, Other)
  Sender: FDA-Public Use
  Company Number: ADR-2014-01690

PATIENT
  Age: 41 Year
  Sex: Female

DRUGS (6)
  1. RELISTOR [Suspect]
     Active Substance: METHYLNALTREXONE BROMIDE
     Route: 058
  2. ORAL DRUGS [Suspect]
     Active Substance: UNSPECIFIED INGREDIENT
     Route: 058
  3. BACLOFEN INTRATEHCAL [Suspect]
     Active Substance: BACLOFEN
     Indication: PAIN
  4. FENTANYL (INTRATHECAL) 700 MCG/ML [Suspect]
     Active Substance: FENTANYL
     Indication: PAIN
  5. BUPIVACAINE (INTRATHECAL) 30 MG/ML [Suspect]
     Active Substance: BUPIVACAINE
     Dosage: SEE B.
  6. DILAUDID [Suspect]
     Active Substance: HYDROMORPHONE HYDROCHLORIDE
     Dosage: SEE B. 5.

REACTIONS (14)
  - Pain [None]
  - Discomfort [None]
  - Device breakage [None]
  - Gait disturbance [None]
  - Hypoaesthesia [None]
  - Groin pain [None]
  - General symptom [None]
  - Pain in extremity [None]
  - Device dislocation [None]
  - Muscle spasms [None]
  - Back pain [None]
  - Paraesthesia [None]
  - Arthralgia [None]
  - Sciatica [None]
